FAERS Safety Report 15501817 (Version 1)
Quarter: 2018Q4

REPORT INFORMATION
  Report Type: Spontaneous
  Country: US (occurrence: US)
  Receive Date: 20181015
  Receipt Date: 20181015
  Transmission Date: 20190205
  Serious: No
  Sender: FDA-Public Use
  Company Number: US-AMGEN-USASP2017187912

PATIENT
  Age: 73 Year
  Sex: Female

DRUGS (9)
  1. EPOGEN [Suspect]
     Active Substance: ERYTHROPOIETIN
     Dosage: 50000 UNIT, QWK
     Route: 065
     Dates: start: 201710, end: 201711
  2. EPOGEN [Suspect]
     Active Substance: ERYTHROPOIETIN
     Indication: NEPHROGENIC ANAEMIA
     Dosage: UNK
     Route: 065
  3. EPOGEN [Suspect]
     Active Substance: ERYTHROPOIETIN
     Dosage: 20000 UNIT, Q2WK
     Route: 065
     Dates: start: 201612
  4. EPOGEN [Suspect]
     Active Substance: ERYTHROPOIETIN
     Dosage: 50000 UNIT, QWK
     Route: 065
     Dates: start: 201710, end: 201711
  5. EPOGEN [Suspect]
     Active Substance: ERYTHROPOIETIN
     Dosage: 50000 UNIT, QWK
     Route: 065
     Dates: start: 201710, end: 201711
  6. EPOGEN [Suspect]
     Active Substance: ERYTHROPOIETIN
     Dosage: 60000 UNIT, QWK
     Route: 065
     Dates: start: 20171129
  7. EPOGEN [Suspect]
     Active Substance: ERYTHROPOIETIN
     Dosage: 60000 UNIT, QWK
     Route: 065
     Dates: start: 20171129
  8. EPOGEN [Suspect]
     Active Substance: ERYTHROPOIETIN
     Dosage: 60000 UNIT, QWK
     Route: 065
     Dates: start: 20171214
  9. EPOGEN [Suspect]
     Active Substance: ERYTHROPOIETIN
     Dosage: 50000 UNIT, QWK
     Route: 065
     Dates: start: 201710, end: 201711

REACTIONS (4)
  - Bone pain [Not Recovered/Not Resolved]
  - Drug ineffective [Not Recovered/Not Resolved]
  - Mobility decreased [Not Recovered/Not Resolved]
  - Dyspnoea [Unknown]
